FAERS Safety Report 23653541 (Version 1)
Quarter: 2024Q1

REPORT INFORMATION
  Report Type: Spontaneous
  Country: US (occurrence: US)
  Receive Date: 20240320
  Receipt Date: 20240320
  Transmission Date: 20240410
  Serious: Yes (Hospitalization)
  Sender: FDA-Public Use
  Company Number: US-ORPHANEU-2024001874

PATIENT

DRUGS (5)
  1. DACTINOMYCIN [Suspect]
     Active Substance: DACTINOMYCIN
     Indication: Rhabdomyosarcoma
     Dosage: 0.025 MG/KG, UNK
  2. DACTINOMYCIN [Suspect]
     Active Substance: DACTINOMYCIN
     Dosage: (A TOTAL OF 52 WEEKS), UNK
  3. VINCRISTINE [Suspect]
     Active Substance: VINCRISTINE
     Indication: Rhabdomyosarcoma
     Dosage: 0.025 MG/KG, UNK
  4. VINCRISTINE [Suspect]
     Active Substance: VINCRISTINE
     Dosage: (A TOTAL OF 52 WEEKS), UNK
  5. CYCLOPHOSPHAMIDE [Suspect]
     Active Substance: CYCLOPHOSPHAMIDE
     Indication: Rhabdomyosarcoma
     Dosage: 40 MG/M2, UNK

REACTIONS (1)
  - Pulmonary nocardiosis [Recovered/Resolved]
